FAERS Safety Report 7565629-0 (Version None)
Quarter: 2011Q2

REPORT INFORMATION
  Report Type: 
  Country: None (occurrence: None)
  Receive Date: 20110623
  Receipt Date: 20110609
  Transmission Date: 20111010
  Serious: Yes (Death, Other)
  Sender: FDA-Public Use
  Company Number: GB-JNJFOC-20110605442

PATIENT
  Sex: Female
  Weight: 63 kg

DRUGS (1)
  1. REMICADE [Suspect]
     Indication: RHEUMATOID ARTHRITIS
     Route: 042
     Dates: start: 20020115, end: 20051107

REACTIONS (5)
  - RESPIRATORY TRACT INFECTION FUNGAL [None]
  - NON-HODGKIN'S LYMPHOMA RECURRENT [None]
  - COLON CANCER [None]
  - LEFT VENTRICULAR DYSFUNCTION [None]
  - OSTEOPOROTIC FRACTURE [None]
